FAERS Safety Report 14057411 (Version 1)
Quarter: 2017Q4

REPORT INFORMATION
  Report Type: Spontaneous
  Country: US (occurrence: US)
  Receive Date: 20171006
  Receipt Date: 20171006
  Transmission Date: 20180321
  Serious: Yes (Other)
  Sender: FDA-Public Use
  Company Number: US-BEH-2017084054

PATIENT
  Age: 71 Year
  Sex: Female
  Weight: 55.78 kg

DRUGS (23)
  1. TORSEMIDE. [Concomitant]
     Active Substance: TORSEMIDE
  2. RANITIDINE. [Concomitant]
     Active Substance: RANITIDINE
  3. LOMOTIL [Concomitant]
     Active Substance: ATROPINE SULFATE\DIPHENOXYLATE HYDROCHLORIDE
  4. SLOW MAG                           /01486809/ [Concomitant]
     Active Substance: MAGNESIUM
  5. ASPIRIN. [Concomitant]
     Active Substance: ASPIRIN
  6. LOSARTAN. [Concomitant]
     Active Substance: LOSARTAN
  7. CLONAZEPAM. [Concomitant]
     Active Substance: CLONAZEPAM
  8. HIZENTRA [Suspect]
     Active Substance: HUMAN IMMUNOGLOBULIN G
     Dosage: UNK
     Route: 058
  9. TACROLIMUS. [Concomitant]
     Active Substance: TACROLIMUS
  10. MYFORTIC [Concomitant]
     Active Substance: MYCOPHENOLATE SODIUM
  11. HIZENTRA [Suspect]
     Active Substance: HUMAN IMMUNOGLOBULIN G
     Dosage: UNK
     Route: 058
  12. PREDNISONE. [Concomitant]
     Active Substance: PREDNISONE
  13. HIZENTRA [Suspect]
     Active Substance: HUMAN IMMUNOGLOBULIN G
     Indication: IMMUNODEFICIENCY COMMON VARIABLE
     Dosage: 12 G, QW
     Route: 058
     Dates: start: 20101220
  14. NEFAZODONE [Concomitant]
     Active Substance: NEFAZODONE
  15. CLONIDINE. [Concomitant]
     Active Substance: CLONIDINE
  16. VITAMINS WITH MINERALS [Concomitant]
     Active Substance: MINERALS\VITAMINS
  17. PREVACID [Concomitant]
     Active Substance: LANSOPRAZOLE
  18. NORVASC [Concomitant]
     Active Substance: AMLODIPINE BESYLATE
  19. ALIGN [Concomitant]
     Active Substance: BIFIDOBACTERIUM LONGUM SUBSP. INFANTIS
  20. VITAMIN D3 [Concomitant]
     Active Substance: CHOLECALCIFEROL
  21. COREG [Concomitant]
     Active Substance: CARVEDILOL
  22. ALIROCUMAB [Concomitant]
     Active Substance: ALIROCUMAB
  23. SERTRALINE [Concomitant]
     Active Substance: SERTRALINE HYDROCHLORIDE

REACTIONS (3)
  - Hypertension [Unknown]
  - Migraine [Unknown]
  - Disturbance in attention [Unknown]

NARRATIVE: CASE EVENT DATE: 20170917
